FAERS Safety Report 16098743 (Version 2)
Quarter: 2019Q2

REPORT INFORMATION
  Report Type: Spontaneous
  Country: US (occurrence: US)
  Receive Date: 20190321
  Receipt Date: 20190424
  Transmission Date: 20190711
  Serious: Yes (Other)
  Sender: FDA-Public Use
  Company Number: US-ASTRAZENECA-2019SE41524

PATIENT
  Age: 24943 Day
  Sex: Female
  Weight: 63.5 kg

DRUGS (8)
  1. TRADJENTA [Concomitant]
     Active Substance: LINAGLIPTIN
     Dosage: 5.0MG UNKNOWN
     Dates: start: 20180921
  2. OMEPRAZOLE. [Suspect]
     Active Substance: OMEPRAZOLE
     Indication: IRRITABLE BOWEL SYNDROME
     Dosage: 20 MG BID, PRIOR TO BREAKFAST AND DINNER
     Route: 048
     Dates: start: 2017
  3. FARXIGA [Suspect]
     Active Substance: DAPAGLIFLOZIN PROPANEDIOL
     Indication: DIABETES MELLITUS
     Route: 048
     Dates: start: 20180302, end: 20190308
  4. GLIPIZIDE. [Concomitant]
     Active Substance: GLIPIZIDE
     Indication: DIABETES MELLITUS
     Route: 048
     Dates: start: 20180227
  5. OMEPRAZOLE. [Suspect]
     Active Substance: OMEPRAZOLE
     Indication: GASTROOESOPHAGEAL REFLUX DISEASE
     Dosage: 20 MG BID, PRIOR TO BREAKFAST AND DINNER
     Route: 048
     Dates: start: 2017
  6. MULTIVITAMINS OTC [Concomitant]
     Indication: PROPHYLAXIS
     Route: 048
     Dates: start: 2000
  7. ATORVASTATIN [Concomitant]
     Active Substance: ATORVASTATIN
     Indication: BLOOD CHOLESTEROL ABNORMAL
     Route: 048
  8. ASPIRIN. [Concomitant]
     Active Substance: ASPIRIN
     Indication: PROPHYLAXIS
     Route: 048

REACTIONS (5)
  - Vaginal infection [Recovered/Resolved]
  - Pyrexia [Recovered/Resolved]
  - Adnexa uteri pain [Not Recovered/Not Resolved]
  - Fungal infection [Recovering/Resolving]
  - Blister [Not Recovered/Not Resolved]

NARRATIVE: CASE EVENT DATE: 201901
